FAERS Safety Report 8835389 (Version 2)
Quarter: 2013Q1

REPORT INFORMATION
  Report Type: Spontaneous
  Country: US (occurrence: US)
  Receive Date: 20121011
  Receipt Date: 20130225
  Transmission Date: 20140127
  Serious: Yes (Death)
  Sender: FDA-Public Use
  Company Number: US-ROCHE-1143278

PATIENT
  Sex: Male

DRUGS (4)
  1. AVASTIN [Suspect]
     Indication: PROSTATE CANCER
     Route: 065
  2. TAXOTERE [Concomitant]
  3. CARBOPLATIN [Concomitant]
  4. EMCYT [Concomitant]

REACTIONS (1)
  - Death [Fatal]
